FAERS Safety Report 18442668 (Version 1)
Quarter: 2020Q4

REPORT INFORMATION
  Report Type: Not Available
  Country: US (occurrence: US)
  Receive Date: 20201029
  Receipt Date: 20201029
  Transmission Date: 20210114
  Serious: No
  Sender: FDA-Public Use
  Company Number: US-NEUROCRINE BIOSCIENCES INC.-2020NBI03806

PATIENT
  Age: 56 Year
  Sex: Female

DRUGS (1)
  1. INGREZZA [Suspect]
     Active Substance: VALBENAZINE
     Indication: TARDIVE DYSKINESIA
     Route: 048
     Dates: start: 20200819, end: 20201006

REACTIONS (6)
  - Eye contusion [Unknown]
  - Contusion [Unknown]
  - Balance disorder [Unknown]
  - Drug ineffective [Unknown]
  - Fall [Unknown]
  - Tooth fracture [Unknown]

NARRATIVE: CASE EVENT DATE: 2020
